FAERS Safety Report 19208272 (Version 1)
Quarter: 2021Q2

REPORT INFORMATION
  Report Type: Spontaneous
  Country: MX (occurrence: MX)
  Receive Date: 20210503
  Receipt Date: 20210503
  Transmission Date: 20210717
  Serious: Yes (Life-Threatening, Hospitalization, Other)
  Sender: FDA-Public Use
  Company Number: MX-PFIZER INC-2021473524

PATIENT
  Age: 3 Month
  Sex: Male

DRUGS (3)
  1. VINCRISTINE [Concomitant]
     Active Substance: VINCRISTINE
     Indication: FIBROSARCOMA
     Dosage: UNK
  2. ACTINOMYCIN C [Concomitant]
     Active Substance: CACTINOMYCIN
     Indication: FIBROSARCOMA
     Dosage: UNK
  3. METHYLPREDNISOLONE SODIUM SUCCINATE. [Suspect]
     Active Substance: METHYLPREDNISOLONE SODIUM SUCCINATE
     Indication: MULTIPLE ORGAN DYSFUNCTION SYNDROME
     Dosage: 500 MG, 2X/DAY (EVERY Q12, 6 DOSES)
     Route: 042

REACTIONS (2)
  - Systemic candida [Recovered/Resolved]
  - Intestinal perforation [Recovered/Resolved]
